FAERS Safety Report 12142634 (Version 1)
Quarter: 2016Q1

REPORT INFORMATION
  Report Type: Spontaneous
  Country: CA (occurrence: CA)
  Receive Date: 20160303
  Receipt Date: 20160303
  Transmission Date: 20160526
  Serious: Yes (Other)
  Sender: FDA-Public Use
  Company Number: CA-SA-2016SA036585

PATIENT
  Age: 62 Year
  Sex: Female

DRUGS (3)
  1. LOSEC [Concomitant]
     Active Substance: OMEPRAZOLE
  2. MICARDIS [Suspect]
     Active Substance: TELMISARTAN
     Route: 048
  3. AVAPRO [Suspect]
     Active Substance: IRBESARTAN
     Route: 048

REACTIONS (2)
  - Cough [Recovered/Resolved]
  - Choking [Recovered/Resolved]
